FAERS Safety Report 4996921-1 (Version None)
Quarter: 2006Q2

REPORT INFORMATION
  Report Type: 
  Country: None (occurrence: None)
  Receive Date: 20060509
  Receipt Date: 20060426
  Transmission Date: 20061013
  Serious: Yes (Other)
  Sender: FDA-Public Use
  Company Number: GB-GLAXOSMITHKLINE-B0421387A

PATIENT
  Age: 23 Year
  Sex: Female
  Weight: 69.85 kg

DRUGS (2)
  1. MALARONE [Suspect]
     Indication: MALARIA PROPHYLAXIS
     Dosage: 1 PER DAY
     Route: 048
     Dates: start: 20060222, end: 20060301
  2. MICROGYNON [Concomitant]
     Indication: ORAL CONTRACEPTION
     Route: 048
     Dates: start: 20010419

REACTIONS (1)
  - PERIORBITAL OEDEMA [None]
